FAERS Safety Report 21198964 (Version 1)
Quarter: 2022Q3

REPORT INFORMATION
  Report Type: Other
  Country: None (occurrence: US)
  Receive Date: 20220811
  Receipt Date: 20220811
  Transmission Date: 20221027
  Serious: Yes (Hospitalization, Other)
  Sender: FDA-Public Use
  Company Number: US-Ajanta Pharma USA Inc.-2131710

PATIENT
  Age: 42 Year
  Sex: Female

DRUGS (3)
  1. DULOXETINE [Suspect]
     Active Substance: DULOXETINE
     Indication: Product used for unknown indication
  2. METOCLOPRAMIDE [Suspect]
     Active Substance: METOCLOPRAMIDE
  3. NORTRIPTYLINE HYDROCHLORIDE [Suspect]
     Active Substance: NORTRIPTYLINE HYDROCHLORIDE

REACTIONS (4)
  - Serotonin syndrome [Recovered/Resolved]
  - Oculogyric crisis [Recovered/Resolved]
  - Dystonia [Recovered/Resolved]
  - Drug interaction [Recovered/Resolved]
